FAERS Safety Report 5105796-1 (Version None)
Quarter: 2006Q3

REPORT INFORMATION
  Report Type: 
  Country: None (occurrence: None)
  Receive Date: 20060915
  Receipt Date: 20060908
  Transmission Date: 20061208
  Serious: Yes (Other)
  Sender: FDA-Public Use
  Company Number: GB-ROCHE-462398

PATIENT
  Age: 41 Year
  Sex: Female

DRUGS (2)
  1. CAPECITABINE [Suspect]
     Route: 065
  2. CISPLATIN [Concomitant]

REACTIONS (1)
  - OSTEONECROSIS [None]
